FAERS Safety Report 8960239 (Version 2)
Quarter: 2013Q1

REPORT INFORMATION
  Report Type: Spontaneous
  Country: US (occurrence: US)
  Receive Date: 20121212
  Receipt Date: 20130228
  Transmission Date: 20140127
  Serious: Yes (Hospitalization, Other)
  Sender: FDA-Public Use
  Company Number: US-BAYER-2012-128791

PATIENT
  Age: 25 Year
  Sex: Female

DRUGS (2)
  1. YAZ [Suspect]
     Indication: PREMENSTRUAL DYSPHORIC DISORDER
     Dosage: UNK
     Dates: start: 20030501, end: 20040801
  2. YAZ [Suspect]
     Indication: PREMENSTRUAL SYNDROME

REACTIONS (14)
  - Deep vein thrombosis [None]
  - Pain [None]
  - Thrombosis [None]
  - Ectopic pregnancy [None]
  - Gastrointestinal haemorrhage [None]
  - Injury [None]
  - General physical health deterioration [None]
  - Anxiety [None]
  - Anhedonia [None]
  - Emotional distress [None]
  - Pain [None]
  - Mental disorder [None]
  - Postpartum depression [None]
  - Drug ineffective [None]
